FAERS Safety Report 9781651 (Version 1)
Quarter: 2013Q4

REPORT INFORMATION
  Report Type: Spontaneous
  Country: US (occurrence: US)
  Receive Date: 20131224
  Receipt Date: 20131224
  Transmission Date: 20140711
  Serious: Yes (Other)
  Sender: FDA-Public Use
  Company Number: CHPA2013US018696

PATIENT
  Age: 62 Year
  Sex: Male

DRUGS (1)
  1. MAALOX ANTACID/ANTIGAS MAX LIQ UNKNOWN [Suspect]
     Dosage: UNK

REACTIONS (1)
  - Myocardial infarction [Unknown]
